FAERS Safety Report 10470655 (Version 2)
Quarter: 2014Q3

REPORT INFORMATION
  Report Type: Spontaneous
  Country: US (occurrence: US)
  Receive Date: 20140923
  Receipt Date: 20140923
  Transmission Date: 20150326
  Serious: Yes (Hospitalization)
  Sender: FDA-Public Use
  Company Number: US-GLAXOSMITHKLINE-A0683915A

PATIENT
  Sex: Male

DRUGS (4)
  1. METFORMIN [Concomitant]
     Active Substance: METFORMIN HYDROCHLORIDE
  2. UNKNOWN BLOOD PRESSURE PILL [Concomitant]
  3. AVANDIA [Suspect]
     Active Substance: ROSIGLITAZONE MALEATE
     Indication: TYPE 2 DIABETES MELLITUS
     Dosage: 8MG PER DAY
     Route: 048
     Dates: start: 2006, end: 2008
  4. GLYBURIDE. [Concomitant]
     Active Substance: GLYBURIDE

REACTIONS (8)
  - Onychomadesis [Unknown]
  - Angina pectoris [Unknown]
  - Thrombosis [Not Recovered/Not Resolved]
  - Cellulitis [Unknown]
  - Thrombosis [Unknown]
  - Chest pain [Unknown]
  - Skin ulcer [Unknown]
  - Pain in extremity [Unknown]
